FAERS Safety Report 4627532-5 (Version None)
Quarter: 2005Q2

REPORT INFORMATION
  Report Type: 
  Country: None (occurrence: None)
  Receive Date: 20050405
  Receipt Date: 20050323
  Transmission Date: 20051028
  Serious: Yes (Other)
  Sender: FDA-Public Use
  Company Number: HQWYE400928MAR05

PATIENT
  Age: 60 Year
  Sex: Female
  Weight: 100.5 kg

DRUGS (8)
  1. TACROLIMUS, CONTROL FOR SIROLIMUS  (TACROLIMUS) [Suspect]
     Indication: PROPHYLAXIS AGAINST TRANSPLANT REJECTION
     Dosage: 5 MG IN AM, 4 MG IN PM, ORAL
     Route: 048
     Dates: start: 20030126
  2. .. [Suspect]
  3. PROTONIX [Concomitant]
  4. NORVASC [Concomitant]
  5. LABETALOL [Concomitant]
  6. HYZAAR [Concomitant]
  7. MYCOPHENOLATE MOFETIL [Concomitant]
  8. PREDNISONE TAB [Concomitant]

REACTIONS (3)
  - COLON ADENOMA [None]
  - DYSPLASIA [None]
  - GASTRIC CANCER [None]
